FAERS Safety Report 24262767 (Version 1)
Quarter: 2024Q3

REPORT INFORMATION
  Report Type: Spontaneous
  Country: US (occurrence: US)
  Receive Date: 20240829
  Receipt Date: 20240829
  Transmission Date: 20241017
  Serious: Yes (Other)
  Sender: DR REDDYS
  Company Number: US-DRL-USA-SPO/USA/24/0012348

PATIENT
  Age: 71 Year
  Sex: Male

DRUGS (4)
  1. POSACONAZOLE [Suspect]
     Active Substance: POSACONAZOLE
     Indication: Protothecosis
  2. POSACONAZOLE [Suspect]
     Active Substance: POSACONAZOLE
     Dosage: DOSE WAS S ADJUSTED BASED ON TROUGH LEVELS RANGE, 600- 4600 NG/ML
  3. POSACONAZOLE [Suspect]
     Active Substance: POSACONAZOLE
  4. POSACONAZOLE [Suspect]
     Active Substance: POSACONAZOLE

REACTIONS (4)
  - Leukopenia [Unknown]
  - Neutropenia [Unknown]
  - Condition aggravated [Unknown]
  - Drug ineffective for unapproved indication [Unknown]
